FAERS Safety Report 20414494 (Version 1)
Quarter: 2022Q1

REPORT INFORMATION
  Report Type: Spontaneous
  Country: JP (occurrence: JP)
  Receive Date: 20220202
  Receipt Date: 20220202
  Transmission Date: 20220424
  Serious: Yes (Other)
  Sender: FDA-Public Use
  Company Number: JP-TAKEDA-2022TJP009917

PATIENT
  Age: 73 Year
  Sex: Male

DRUGS (1)
  1. VECTIBIX [Suspect]
     Active Substance: PANITUMUMAB
     Indication: Colon cancer
     Dosage: 4.8 MILLIGRAM/KILOGRAM
     Route: 041

REACTIONS (5)
  - Neutropenia [Unknown]
  - Dermatitis acneiform [Unknown]
  - Paronychia [Unknown]
  - Hypomagnesaemia [Unknown]
  - Diarrhoea [Unknown]
